FAERS Safety Report 8455138-9 (Version None)
Quarter: 2012Q2

REPORT INFORMATION
  Report Type: 
  Country: None (occurrence: None)
  Receive Date: 20120614
  Receipt Date: 20120605
  Transmission Date: 20120825
  Serious: Yes (Hospitalization, Other)
  Sender: FDA-Public Use
  Company Number: ADR-2012-01100

PATIENT
  Sex: Male

DRUGS (3)
  1. BACLOFEN [Suspect]
     Indication: SPINAL CORD INJURY
     Dosage: SEE B5
  2. BACLOFEN [Suspect]
     Indication: SPINAL CORD DISORDER
     Dosage: SEE B5
  3. BACLOFEN [Suspect]
     Indication: MUSCLE SPASTICITY
     Dosage: SEE B5

REACTIONS (5)
  - DRUG WITHDRAWAL SYNDROME [None]
  - DRUG ADMINISTRATION ERROR [None]
  - DEVICE ALARM ISSUE [None]
  - NO THERAPEUTIC RESPONSE [None]
  - CONVULSION [None]
